FAERS Safety Report 23617175 (Version 1)
Quarter: 2024Q1

REPORT INFORMATION
  Report Type: Spontaneous
  Country: CA (occurrence: CA)
  Receive Date: 20240311
  Receipt Date: 20240311
  Transmission Date: 20240410
  Serious: Yes (Life-Threatening, Hospitalization)
  Sender: FDA-Public Use
  Company Number: CA-AstraZeneca-2024A056574

PATIENT
  Age: 51 Year
  Sex: Female

DRUGS (1)
  1. TRASTUZUMAB DERUXTECAN [Suspect]
     Active Substance: TRASTUZUMAB DERUXTECAN
     Indication: Breast cancer metastatic
     Dosage: 340 MG, ONCE EVERY 3 WK
     Route: 042

REACTIONS (1)
  - Respiratory disorder [Unknown]
